FAERS Safety Report 4480840-3 (Version None)
Quarter: 2004Q4

REPORT INFORMATION
  Report Type: 
  Country: None (occurrence: None)
  Receive Date: 20041021
  Receipt Date: 20040312
  Transmission Date: 20050328
  Serious: Yes (Hospitalization)
  Sender: FDA-Public Use
  Company Number: FR-ABBOTT-04P-056-0253310-00

PATIENT
  Age: 72 Year
  Sex: Female

DRUGS (2)
  1. DEPAKINE CHRONO TABLETS [Suspect]
     Indication: GRAND MAL CONVULSION
     Route: 048
     Dates: start: 20021215, end: 20031101
  2. DEPAKINE CHRONO TABLETS [Suspect]
     Dates: start: 20031101, end: 20040201

REACTIONS (10)
  - ABASIA [None]
  - BALANCE DISORDER [None]
  - DEMENTIA [None]
  - EUPHORIC MOOD [None]
  - FALL [None]
  - INCONTINENCE [None]
  - LOGORRHOEA [None]
  - PARKINSONISM [None]
  - PERSONALITY CHANGE DUE TO A GENERAL MEDICAL CONDITION [None]
  - UNEVALUABLE EVENT [None]
